FAERS Safety Report 23716759 (Version 1)
Quarter: 2024Q2

REPORT INFORMATION
  Report Type: Spontaneous
  Country: JP (occurrence: JP)
  Receive Date: 20240408
  Receipt Date: 20240408
  Transmission Date: 20240715
  Serious: Yes (Death, Other)
  Sender: FDA-Public Use
  Company Number: JP-BRISTOL-MYERS SQUIBB COMPANY-2024-054941

PATIENT
  Age: 86 Year
  Sex: Male
  Weight: 51 kg

DRUGS (9)
  1. REVLIMID [Suspect]
     Active Substance: LENALIDOMIDE
     Indication: Follicular lymphoma
     Dates: start: 20230513, end: 20230602
  2. REVLIMID [Suspect]
     Active Substance: LENALIDOMIDE
     Dates: start: 20230610, end: 20230630
  3. REVLIMID [Suspect]
     Active Substance: LENALIDOMIDE
     Dates: start: 20230708, end: 20230721
  4. RITUXIMAB [Suspect]
     Active Substance: RITUXIMAB
     Indication: Follicular lymphoma
     Dates: start: 20230513, end: 20230513
  5. RITUXIMAB [Suspect]
     Active Substance: RITUXIMAB
     Dates: start: 20230520, end: 20230520
  6. RITUXIMAB [Suspect]
     Active Substance: RITUXIMAB
     Dates: start: 20230527, end: 20230527
  7. RITUXIMAB [Suspect]
     Active Substance: RITUXIMAB
     Dates: start: 20230603, end: 20230603
  8. RITUXIMAB [Suspect]
     Active Substance: RITUXIMAB
     Dates: start: 20230610, end: 20230610
  9. RITUXIMAB [Suspect]
     Active Substance: RITUXIMAB
     Dates: start: 20230708, end: 20230708

REACTIONS (1)
  - Death [Fatal]

NARRATIVE: CASE EVENT DATE: 20230911
